FAERS Safety Report 17525420 (Version 1)
Quarter: 2020Q1

REPORT INFORMATION
  Report Type: Spontaneous
  Country: US (occurrence: US)
  Receive Date: 20200303
  Receipt Date: 20200303
  Transmission Date: 20200409
  Serious: No
  Sender: FDA-Public Use
  Company Number: None

PATIENT
  Age: 81 Year
  Sex: Male

DRUGS (1)
  1. DULOXETINE (DULOXETINE HCL 30MG CAP, EC) [Suspect]
     Active Substance: DULOXETINE HYDROCHLORIDE
     Route: 048
     Dates: start: 20190221, end: 20191211

REACTIONS (4)
  - Feeling abnormal [None]
  - Confusional state [None]
  - Communication disorder [None]
  - Mental status changes [None]

NARRATIVE: CASE EVENT DATE: 20191211
